FAERS Safety Report 7792885-6 (Version None)
Quarter: 2011Q3

REPORT INFORMATION
  Report Type: 
  Country: None (occurrence: None)
  Receive Date: 20110929
  Receipt Date: 20110915
  Transmission Date: 20111222
  Serious: Yes (Life-Threatening)
  Sender: FDA-Public Use
  Company Number: TCI2011A04290

PATIENT
  Age: 67 Year
  Sex: Male

DRUGS (9)
  1. ACTOS [Suspect]
     Indication: DIABETES MELLITUS
     Dosage: 15 MG (15 MG, 1 IN ID)
     Route: 048
  2. PLAVIX [Concomitant]
  3. NORVASC [Concomitant]
  4. PLETAL [Concomitant]
  5. NATEGLINIDE [Concomitant]
  6. BLOPRESS (CANDESARTAN CILEXETIL) [Concomitant]
  7. ASPIRIN [Concomitant]
  8. BISOPROLOL FUMARATE [Concomitant]
  9. NATEGLINIDE [Concomitant]

REACTIONS (2)
  - BLADDER CANCER [None]
  - ARTERIOSCLEROSIS OBLITERANS [None]
